FAERS Safety Report 5808070-0 (Version None)
Quarter: 2008Q3

REPORT INFORMATION
  Report Type: 
  Country: None (occurrence: None)
  Receive Date: 20080711
  Receipt Date: 20080629
  Transmission Date: 20090109
  Serious: Yes (Other)
  Sender: FDA-Public Use
  Company Number: US-PFIZER INC-2008054900

PATIENT

DRUGS (1)
  1. CHANTIX [Suspect]

REACTIONS (4)
  - ALOPECIA [None]
  - GOUT [None]
  - RASH [None]
  - SKIN ULCER [None]
